FAERS Safety Report 7327855-5 (Version None)
Quarter: 2011Q1

REPORT INFORMATION
  Report Type: 
  Country: None (occurrence: None)
  Receive Date: 20110303
  Receipt Date: 20110228
  Transmission Date: 20110831
  Serious: No
  Sender: FDA-Public Use
  Company Number: US-PFIZER INC-2011041049

PATIENT
  Sex: Male
  Weight: 66.213 kg

DRUGS (1)
  1. CHANTIX [Suspect]
     Indication: SMOKING CESSATION THERAPY
     Dosage: 0.5 MG, 1X/DAY
     Route: 048
     Dates: start: 20110215, end: 20110222

REACTIONS (5)
  - MALAISE [None]
  - SENSATION OF HEAVINESS [None]
  - ASTHENIA [None]
  - NAUSEA [None]
  - DRUG INEFFECTIVE [None]
